FAERS Safety Report 6416778-1 (Version None)
Quarter: 2009Q4

REPORT INFORMATION
  Report Type: 
  Country: None (occurrence: None)
  Receive Date: 20091027
  Receipt Date: 20091022
  Transmission Date: 20100525
  Serious: Yes (Hospitalization)
  Sender: FDA-Public Use
  Company Number: US-B.I. PHARMACEUTICALS,INC./RIDGEFIELD-2009-BP-12363BP

PATIENT
  Sex: Female

DRUGS (4)
  1. SPIRIVA [Suspect]
     Indication: CHRONIC OBSTRUCTIVE PULMONARY DISEASE
     Dosage: 18 MCG
     Route: 055
     Dates: start: 20090904
  2. CHEMOTHERAPY [Concomitant]
     Indication: LUNG NEOPLASM MALIGNANT
     Dates: start: 20091012
  3. TOPROL-XL [Concomitant]
     Indication: HYPERTENSION
     Dates: start: 20030101
  4. LIPITOR [Concomitant]
     Indication: BLOOD CHOLESTEROL INCREASED
     Dates: start: 20030101

REACTIONS (2)
  - COLLAPSE OF LUNG [None]
  - DYSPNOEA [None]
